FAERS Safety Report 5707563-4 (Version None)
Quarter: 2008Q2

REPORT INFORMATION
  Report Type: 
  Country: None (occurrence: None)
  Receive Date: 20080411
  Receipt Date: 20061107
  Transmission Date: 20081010
  Serious: Yes (Other)
  Sender: FDA-Public Use
  Company Number: 8020290

PATIENT
  Age: 5 Year
  Sex: Male

DRUGS (1)
  1. METADATE CD [Suspect]
     Dosage: 40 MG
     Dates: start: 20060901

REACTIONS (3)
  - CRYING [None]
  - FATIGUE [None]
  - LIMB DISCOMFORT [None]
